FAERS Safety Report 7704466-0 (Version None)
Quarter: 2011Q3

REPORT INFORMATION
  Report Type: 
  Country: None (occurrence: None)
  Receive Date: 20110823
  Receipt Date: 20110817
  Transmission Date: 20111222
  Serious: Yes (Other)
  Sender: FDA-Public Use
  Company Number: US-ABBOTT-11P-163-0848005-00

PATIENT
  Sex: Female
  Weight: 75.818 kg

DRUGS (11)
  1. HUMIRA [Suspect]
     Indication: PSORIASIS
     Route: 058
     Dates: start: 20110601, end: 20110730
  2. UNKNOWN ANTIBIOTIC [Concomitant]
     Indication: INFECTION PROPHYLAXIS
  3. ASPIRIN [Concomitant]
     Indication: PROPHYLAXIS
     Dosage: LOW DOSE
  4. VITAMIN D [Concomitant]
     Indication: PRODUCT USED FOR UNKNOWN INDICATION
  5. LOSARTAN [Concomitant]
     Indication: HYPERTENSION
  6. FLUOXETINE [Concomitant]
     Indication: DEPRESSION
  7. TOPROL-XL [Concomitant]
     Indication: HYPERTENSION
  8. UNKNOWN ANTIBIOTIC [Concomitant]
     Indication: SURGERY
  9. SIMVASTATIN [Concomitant]
     Indication: HYPERLIPIDAEMIA
  10. FISH OIL [Concomitant]
     Indication: PRODUCT USED FOR UNKNOWN INDICATION
  11. DILTIAZEM [Concomitant]
     Indication: HYPERTENSION

REACTIONS (4)
  - ABDOMINAL DISTENSION [None]
  - ABDOMINAL PAIN [None]
  - GASTROINTESTINAL DISORDER [None]
  - INTESTINAL OBSTRUCTION [None]
